FAERS Safety Report 5889506-6 (Version None)
Quarter: 2008Q3

REPORT INFORMATION
  Report Type: 
  Country: None (occurrence: None)
  Receive Date: 20080919
  Receipt Date: 20080909
  Transmission Date: 20090109
  Serious: Yes (Other)
  Sender: FDA-Public Use
  Company Number: CO-ELI_LILLY_AND_COMPANY-CO200805004149

PATIENT
  Age: 78 Year
  Sex: Female

DRUGS (5)
  1. FORTEO [Suspect]
     Indication: OSTEOPOROSIS
     Dosage: 20 UG, DAILY (1/D)
     Route: 058
     Dates: start: 20071201, end: 20080501
  2. PROPAFENONE HCL [Concomitant]
     Indication: ARRHYTHMIA
     Dosage: 150 MG, DAILY (1/D)
     Route: 065
  3. CALCITRIOL [Concomitant]
     Indication: OSTEOPOROSIS
     Dosage: UNK, UNKNOWN
     Route: 065
  4. LOVAZA [Concomitant]
     Dosage: UNK, UNKNOWN
     Route: 065
  5. CALCIUM CARBONATE W/VITAMIN D NOS [Concomitant]
     Indication: OSTEOPOROSIS
     Dosage: UNK, UNKNOWN
     Route: 065

REACTIONS (2)
  - ARRHYTHMIA [None]
  - VENOUS THROMBOSIS LIMB [None]
